FAERS Safety Report 7597049-7 (Version None)
Quarter: 2011Q3

REPORT INFORMATION
  Report Type: 
  Country: None (occurrence: None)
  Receive Date: 20110708
  Receipt Date: 20110704
  Transmission Date: 20111222
  Serious: Yes (Death)
  Sender: FDA-Public Use
  Company Number: GB-PFIZER INC-2011119371

PATIENT
  Age: 27 Year
  Sex: Male

DRUGS (4)
  1. PROPRANOLOL [Concomitant]
     Dosage: 10 MG, X 2
     Route: 048
  2. GABAPENTIN [Suspect]
     Dosage: UNK
  3. ZUCLOPENTHIXOL DECANOATE [Concomitant]
     Dosage: 500 MG, EVERY 2 WEEKS
     Route: 030
  4. PROCYCLIDINE [Concomitant]
     Dosage: 5 MG, AS REQUIRED
     Route: 048

REACTIONS (2)
  - TOXICITY TO VARIOUS AGENTS [None]
  - DRUG ABUSE [None]
